FAERS Safety Report 25219946 (Version 2)
Quarter: 2025Q2

REPORT INFORMATION
  Report Type: Spontaneous
  Country: IT (occurrence: IT)
  Receive Date: 20250421
  Receipt Date: 20250611
  Transmission Date: 20250716
  Serious: Yes (Other)
  Sender: NOVARTIS
  Company Number: None

PATIENT
  Age: 53 Year
  Sex: Female
  Weight: 65 kg

DRUGS (1)
  1. IMATINIB MESYLATE [Suspect]
     Active Substance: IMATINIB MESYLATE
     Indication: Gastrointestinal stromal tumour
     Dosage: 400 MG QD (400 MG/DIE)
     Route: 048

REACTIONS (6)
  - Asthenia [Recovering/Resolving]
  - Pruritus [Recovering/Resolving]
  - Fluid retention [Recovering/Resolving]
  - Vertigo [Recovering/Resolving]
  - Conjunctival haemorrhage [Recovering/Resolving]
  - Eczema [Recovering/Resolving]

NARRATIVE: CASE EVENT DATE: 20250220
